FAERS Safety Report 10978704 (Version 1)
Quarter: 2015Q2

REPORT INFORMATION
  Report Type: Report from Study
  Country: JP (occurrence: JP)
  Receive Date: 20150402
  Receipt Date: 20150402
  Transmission Date: 20150821
  Serious: Yes (Life-Threatening, Hospitalization, Disabling, Other)
  Sender: FDA-Public Use
  Company Number: JP-ABBVIE-10P-087-0681878-00

PATIENT
  Age: 40 Year
  Sex: Male
  Weight: 48 kg

DRUGS (6)
  1. SALAZOSULFAPYRIDINE [Concomitant]
     Active Substance: SULFASALAZINE
     Indication: PSORIATIC ARTHROPATHY
     Route: 048
     Dates: start: 20100511, end: 20100524
  2. CELECOXIB. [Concomitant]
     Active Substance: CELECOXIB
     Dates: start: 20101005, end: 20101116
  3. ADALIMUMAB [Suspect]
     Active Substance: ADALIMUMAB
     Route: 058
     Dates: start: 20100810, end: 20101005
  4. ADALIMUMAB [Suspect]
     Active Substance: ADALIMUMAB
     Indication: PSORIATIC ARTHROPATHY
     Route: 058
     Dates: start: 20100511, end: 20100720
  5. CELECOXIB. [Concomitant]
     Active Substance: CELECOXIB
     Indication: PSORIATIC ARTHROPATHY
     Route: 048
     Dates: start: 20100511, end: 20100525
  6. DICLOFENAC SODIUM. [Concomitant]
     Active Substance: DICLOFENAC SODIUM
     Indication: PSORIATIC ARTHROPATHY
     Route: 048
     Dates: start: 20101005, end: 20101014

REACTIONS (10)
  - Coma [Not Recovered/Not Resolved]
  - Pyrexia [Not Recovered/Not Resolved]
  - Seizure [Recovering/Resolving]
  - Back pain [Unknown]
  - Respiratory disorder [Recovering/Resolving]
  - Arthralgia [Unknown]
  - Meningoencephalitis herpetic [Recovered/Resolved with Sequelae]
  - Nystagmus [Not Recovered/Not Resolved]
  - Musculoskeletal stiffness [Not Recovered/Not Resolved]
  - Oxygen saturation decreased [Recovering/Resolving]

NARRATIVE: CASE EVENT DATE: 20100921
